FAERS Safety Report 7969541-4 (Version None)
Quarter: 2011Q4

REPORT INFORMATION
  Report Type: 
  Country: None (occurrence: None)
  Receive Date: 20111212
  Receipt Date: 20111209
  Transmission Date: 20120403
  Serious: No
  Sender: FDA-Public Use
  Company Number: US-PFIZER INC-2011301172

PATIENT
  Sex: Male
  Weight: 80.72 kg

DRUGS (4)
  1. CHANTIX [Suspect]
     Indication: SMOKING CESSATION THERAPY
     Dosage: UNK
     Route: 048
     Dates: start: 20110101
  2. FENTANYL [Concomitant]
     Indication: PAIN
     Dosage: 100 UG, EVERY 72HRS
  3. OXYCODONE HCL AND ACETAMINOPHEN [Concomitant]
     Indication: PAIN
     Dosage: [OXYCODONE] 5 / [PARACETAMOL]325, AS NEEDED
     Route: 048
  4. DOC-Q-LACE [Concomitant]
     Indication: FAECES HARD
     Dosage: 100 MG, DAILY
     Dates: end: 20111201

REACTIONS (1)
  - PRURITUS GENERALISED [None]
